FAERS Safety Report 24395027 (Version 1)
Quarter: 2024Q4

REPORT INFORMATION
  Report Type: Spontaneous
  Country: RU (occurrence: RU)
  Receive Date: 20241004
  Receipt Date: 20241004
  Transmission Date: 20250115
  Serious: Yes (Other)
  Sender: MELINTA THERAPEUTICS
  Company Number: RU-AstraZeneca-CH-00710169A

PATIENT

DRUGS (1)
  1. METOPROLOL SUCCINATE [Suspect]
     Active Substance: METOPROLOL SUCCINATE
     Indication: Product used for unknown indication

REACTIONS (2)
  - Ventricular extrasystoles [Not Recovered/Not Resolved]
  - Drug ineffective [Not Recovered/Not Resolved]
